FAERS Safety Report 4667531-0 (Version None)
Quarter: 2005Q2

REPORT INFORMATION
  Report Type: 
  Country: None (occurrence: None)
  Receive Date: 20050520
  Receipt Date: 20050510
  Transmission Date: 20051028
  Serious: Yes (Other)
  Sender: FDA-Public Use
  Company Number: FR-JNJFOC-20050501192

PATIENT
  Age: 50 Year
  Sex: Female

DRUGS (2)
  1. EPITOMAX [Suspect]
     Indication: PARTIAL SEIZURES
     Route: 049
  2. URBANYL [Concomitant]
     Dosage: DRUG TAKEN AT NIGHT
     Route: 065

REACTIONS (1)
  - JUGULAR VEIN THROMBOSIS [None]
